FAERS Safety Report 4358002-X (Version None)
Quarter: 2004Q2

REPORT INFORMATION
  Report Type: 
  Country: None (occurrence: None)
  Receive Date: 20040513
  Receipt Date: 20040513
  Transmission Date: 20050107
  Serious: Yes (Hospitalization)
  Sender: FDA-Public Use
  Company Number: None

PATIENT
  Sex: Female

DRUGS (1)
  1. TAXOL [Suspect]
     Dates: start: 20040416

REACTIONS (2)
  - CORONARY ARTERY THROMBOSIS [None]
  - ELECTROCARDIOGRAM ABNORMAL [None]
